FAERS Safety Report 8923774 (Version 3)
Quarter: 2013Q4

REPORT INFORMATION
  Report Type: Spontaneous
  Country: US (occurrence: US)
  Receive Date: 20121126
  Receipt Date: 20131118
  Transmission Date: 20140711
  Serious: Yes (Hospitalization)
  Sender: FDA-Public Use
  Company Number: US-B.I. PHARMACEUTICALS,INC./RIDGEFIELD-2012-BI-00826BP

PATIENT
  Age: 65 Year
  Sex: Female

DRUGS (27)
  1. PRADAXA [Suspect]
     Indication: ATRIAL FIBRILLATION
     Dosage: 300 MG
     Route: 048
     Dates: start: 201208
  2. HYDROCODONE-APAP [Concomitant]
     Indication: PAIN
     Route: 048
     Dates: start: 2008
  3. TOVIAZ [Concomitant]
     Indication: URINARY INCONTINENCE
     Dosage: 8 MG
     Route: 048
     Dates: start: 2010
  4. FUROSEMIDE [Concomitant]
     Indication: FLUID OVERLOAD
     Dosage: 80 MG
     Route: 048
     Dates: start: 2006
  5. MAPAP ARTHRITIS [Concomitant]
     Indication: PAIN
     Route: 048
     Dates: start: 20121101
  6. CLONAZEPAM [Concomitant]
     Indication: SLEEP DISORDER
     Dosage: 3 MG
     Route: 048
     Dates: start: 2010
  7. CLONAZEPAM [Concomitant]
     Dosage: 4 MG
     Route: 048
  8. TRAMEDOL HCL [Concomitant]
     Indication: PAIN
     Dosage: 200 MG
     Route: 048
     Dates: start: 20121026
  9. REQUIP [Concomitant]
     Indication: RESTLESS LEGS SYNDROME
     Dosage: 4 MG
     Route: 048
     Dates: start: 2004
  10. SERTRALINE [Concomitant]
     Indication: DEPRESSION
     Dosage: 150 MG
     Route: 048
     Dates: start: 2009
  11. OMEPRAZOLE [Concomitant]
     Indication: GASTROOESOPHAGEAL REFLUX DISEASE
     Dosage: 40 MG
     Route: 048
     Dates: start: 2006
  12. HYDROCODONE HOMATROPINE SYRUP [Concomitant]
     Indication: COUGH
     Route: 048
     Dates: start: 2011
  13. OLANZAPINE [Concomitant]
     Indication: SLEEP DISORDER
     Dosage: 10 MG
     Route: 048
     Dates: start: 20121102
  14. LYRICA [Concomitant]
     Indication: NEUROPATHY PERIPHERAL
     Dosage: 200 MG
     Route: 048
     Dates: start: 2010
  15. METOPROLOL [Concomitant]
     Indication: CARDIAC DISORDER
     Dosage: 100 MG
     Route: 048
     Dates: start: 2006
  16. AGGRENOX [Concomitant]
     Indication: CEREBROVASCULAR ACCIDENT PROPHYLAXIS
     Dosage: 25 MG / 200 MG, 50 MG / 400 MG (BID)
     Route: 048
     Dates: start: 2006, end: 20120815
  17. AMIODARONE [Concomitant]
     Dosage: 200 MG
     Route: 048
  18. LISINOPRIL [Concomitant]
     Dosage: 5 MG
     Route: 048
  19. LASIX [Concomitant]
     Dosage: 80 MG
     Route: 048
  20. REQUIP XL [Concomitant]
     Dosage: 4 MG
     Route: 048
  21. CITRULLINE [Concomitant]
     Dosage: 100 MG
     Route: 048
  22. LYRICA [Concomitant]
     Dosage: 200 MG
     Route: 048
  23. ZOLPIDEM TARTRATER [Concomitant]
     Dosage: 5 MG
     Route: 048
  24. HYDROCODONE [Concomitant]
     Indication: COUGH
     Route: 048
  25. MIRTAZAPINE [Concomitant]
     Dosage: 30 MG
     Route: 048
  26. CRESTOR [Concomitant]
     Dosage: 5 MG
     Route: 048
  27. NYSTATIN [Concomitant]
     Route: 061

REACTIONS (9)
  - Dyspnoea [Recovered/Resolved]
  - Localised oedema [Recovered/Resolved]
  - Oedema peripheral [Recovered/Resolved]
  - Dyspnoea exertional [Not Recovered/Not Resolved]
  - Urinary tract infection [Not Recovered/Not Resolved]
  - Fall [Recovered/Resolved]
  - Rib fracture [Not Recovered/Not Resolved]
  - Nausea [Recovered/Resolved]
  - Hyperhidrosis [Recovered/Resolved]
